FAERS Safety Report 9596754 (Version 2)
Quarter: 2013Q4

REPORT INFORMATION
  Report Type: Not Available
  Country: FR (occurrence: FR)
  Receive Date: 20131004
  Receipt Date: 20131213
  Transmission Date: 20140711
  Serious: Yes (Life-Threatening, Hospitalization, Other)
  Sender: FDA-Public Use
  Company Number: FR-NAPPMUNDI-GBR-2013-0015850

PATIENT
  Age: 87 Year
  Sex: Female

DRUGS (9)
  1. OXYCONTIN LP 20 MG, COMPRIME PELLICULE A LIBERATION PROLONGEE [Suspect]
     Indication: PAIN
     Dosage: 30 MG, BID
     Route: 048
     Dates: end: 20130629
  2. OXYNORM 5 MG, GELULE [Suspect]
     Indication: PAIN
     Dosage: 5 MG, TID
     Route: 048
  3. PARACETAMOL [Concomitant]
     Dosage: 1 G, TID
  4. AMLODIPINE [Concomitant]
     Dosage: UNK
  5. DIFFU K [Concomitant]
     Dosage: UNK
  6. FORLAX                             /00754501/ [Concomitant]
     Dosage: UNK
  7. OROCAL D3 [Concomitant]
     Dosage: 500MG/200IU
  8. DAFALGAN [Concomitant]
     Dosage: UNK
  9. LOVENOX [Concomitant]
     Dosage: UNK

REACTIONS (6)
  - Overdose [Recovered/Resolved]
  - Hypoxia [Recovered/Resolved]
  - Respiratory distress [Recovered/Resolved]
  - Dyspnoea [Recovered/Resolved]
  - Hallucination [Recovered/Resolved]
  - Somnolence [Recovered/Resolved]
